FAERS Safety Report 24388407 (Version 4)
Quarter: 2025Q1

REPORT INFORMATION
  Report Type: Report from Study
  Country: US (occurrence: US)
  Receive Date: 20241002
  Receipt Date: 20250207
  Transmission Date: 20250409
  Serious: Yes (Death, Life-Threatening, Hospitalization)
  Sender: pharmaAND
  Company Number: US-Pharmaand-2024000960

PATIENT
  Age: 77 Year
  Sex: Male
  Weight: 98 kg

DRUGS (2)
  1. RUBRACA [Suspect]
     Active Substance: RUCAPARIB CAMSYLATE
     Indication: Squamous cell carcinoma
     Dosage: 600 MG PO BID
     Route: 048
     Dates: start: 20200325
  2. RUBRACA [Suspect]
     Active Substance: RUCAPARIB CAMSYLATE
     Dosage: 300 MG, 1X/DAY
     Route: 048
     Dates: start: 20240821, end: 20240821

REACTIONS (6)
  - Rectal haemorrhage [Fatal]
  - Leukaemia [Not Recovered/Not Resolved]
  - Sepsis [Unknown]
  - Biliary dyskinesia [Unknown]
  - Pneumonia [Unknown]
  - Urinary tract infection [Unknown]

NARRATIVE: CASE EVENT DATE: 20240907
